FAERS Safety Report 5224545-X (Version None)
Quarter: 2007Q1

REPORT INFORMATION
  Report Type: 
  Country: None (occurrence: None)
  Receive Date: 20070130
  Receipt Date: 20070122
  Transmission Date: 20070707
  Serious: Yes (Life-Threatening)
  Sender: FDA-Public Use
  Company Number: GB-PFIZER INC-2007006729

PATIENT
  Age: 39 Year
  Sex: Male

DRUGS (3)
  1. SERTRALINE [Suspect]
     Indication: DEPRESSION
     Route: 048
     Dates: start: 20060811, end: 20060823
  2. SERTRALINE [Suspect]
     Indication: SCHIZOPHRENIA
  3. OLANZAPINE [Concomitant]

REACTIONS (5)
  - HYPOTENSION [None]
  - NEUTROPHILIA [None]
  - OEDEMA [None]
  - PYREXIA [None]
  - STEVENS-JOHNSON SYNDROME [None]
